FAERS Safety Report 22149538 (Version 1)
Quarter: 2023Q1

REPORT INFORMATION
  Report Type: Spontaneous
  Country: MX (occurrence: MX)
  Receive Date: 20230329
  Receipt Date: 20230329
  Transmission Date: 20230417
  Serious: Yes (Other)
  Sender: FDA-Public Use
  Company Number: MX-BAYER-2023A040532

PATIENT
  Age: 76 Year
  Sex: Female

DRUGS (2)
  1. XARELTO [Suspect]
     Active Substance: RIVAROXABAN
     Indication: Coronary artery disease
     Dosage: 15 MG, QD
     Route: 048
     Dates: start: 201803, end: 20230317
  2. XARELTO [Suspect]
     Active Substance: RIVAROXABAN
     Indication: Peripheral arterial occlusive disease
     Route: 048

REACTIONS (2)
  - Large intestinal haemorrhage [Not Recovered/Not Resolved]
  - Precancerous lesion of digestive tract [Not Recovered/Not Resolved]

NARRATIVE: CASE EVENT DATE: 20230317
